FAERS Safety Report 5270568-4 (Version None)
Quarter: 2007Q1

REPORT INFORMATION
  Report Type: 
  Country: None (occurrence: None)
  Receive Date: 20070315
  Receipt Date: 20070306
  Transmission Date: 20070707
  Serious: Yes (Hospitalization)
  Sender: FDA-Public Use
  Company Number: 2007AL000939

PATIENT
  Age: 15 Year
  Sex: Female

DRUGS (2)
  1. QUINAPRIL [Suspect]
     Dosage: 560 MG; X1; PO
     Route: 048
  2. FLECAINIDE ACETATE [Concomitant]

REACTIONS (9)
  - BUNDLE BRANCH BLOCK RIGHT [None]
  - DRUG TOXICITY [None]
  - ELECTROCARDIOGRAM PR PROLONGATION [None]
  - ELECTROCARDIOGRAM QT PROLONGED [None]
  - HYPOTENSION [None]
  - MULTIPLE DRUG OVERDOSE INTENTIONAL [None]
  - NO THERAPEUTIC RESPONSE [None]
  - SOMNOLENCE [None]
  - TACHYCARDIA [None]
